FAERS Safety Report 18748590 (Version 1)
Quarter: 2021Q1

REPORT INFORMATION
  Report Type: Spontaneous
  Country: IN (occurrence: US)
  Receive Date: 20210115
  Receipt Date: 20210115
  Transmission Date: 20210419
  Serious: Yes (Hospitalization, Other)
  Sender: FDA-Public Use
  Company Number: US-ELI_LILLY_AND_COMPANY-US202101001289

PATIENT
  Age: 29 Year
  Sex: Male

DRUGS (2)
  1. OLANZAPINE. [Suspect]
     Active Substance: OLANZAPINE
     Dosage: WAS ONLY TAKING IT TWICE PER WEEK, RATHER THAN NIGHTLY AS PRESCRIBED
     Route: 065
  2. OLANZAPINE. [Suspect]
     Active Substance: OLANZAPINE
     Indication: PRODUCT USED FOR UNKNOWN INDICATION
     Dosage: 20 MG,NIGHTLY
     Route: 065

REACTIONS (9)
  - Generalised anxiety disorder [Unknown]
  - Insomnia [Unknown]
  - Psychotic disorder [Unknown]
  - Circadian rhythm sleep disorder [Unknown]
  - Suicide attempt [Unknown]
  - Loss of personal independence in daily activities [Unknown]
  - Sedation complication [Unknown]
  - Hallucination, visual [Unknown]
  - Treatment noncompliance [Unknown]
